FAERS Safety Report 18644373 (Version 1)
Quarter: 2020Q4

REPORT INFORMATION
  Report Type: Spontaneous
  Country: US (occurrence: US)
  Receive Date: 20201221
  Receipt Date: 20201221
  Transmission Date: 20210114
  Serious: Yes (Death, Other)
  Sender: FDA-Public Use
  Company Number: US-PURDUE-USA-2020-0190747

PATIENT
  Sex: Male

DRUGS (2)
  1. OXYCONTIN [Suspect]
     Active Substance: OXYCODONE HYDROCHLORIDE
     Indication: BACK INJURY
     Dosage: UNK
     Route: 048
  2. DURAGESIC [Suspect]
     Active Substance: FENTANYL
     Indication: BACK INJURY
     Dosage: UNK
     Route: 065

REACTIONS (9)
  - Drug dependence [Unknown]
  - Agitation [Unknown]
  - Hallucination [Unknown]
  - Mood swings [Unknown]
  - Anger [Unknown]
  - Confusional state [Unknown]
  - Death [Fatal]
  - Liver injury [Unknown]
  - Nightmare [Unknown]
